FAERS Safety Report 19490982 (Version 2)
Quarter: 2024Q1

REPORT INFORMATION
  Report Type: Other
  Country: AT (occurrence: AT)
  Receive Date: 20210705
  Receipt Date: 20240307
  Transmission Date: 20240410
  Serious: Yes (Hospitalization)
  Sender: FDA-Public Use
  Company Number: AT-CELLTRION HEALTHCARE HUNGARY KFT-2019AT022614

PATIENT
  Age: 70 Year
  Sex: Female
  Weight: 52 kg

DRUGS (24)
  1. HERCEPTIN [Suspect]
     Active Substance: TRASTUZUMAB
     Indication: HER2 positive breast cancer
     Route: 065
     Dates: start: 20180731, end: 20180731
  2. HERCEPTIN [Suspect]
     Active Substance: TRASTUZUMAB
     Dosage: 6 MG/KG, EVERY 3 WEEKS; (MOST RECENT DOSE PRIOR TO THE EVENT: 14/DEC/2018)
     Route: 065
     Dates: start: 20180821
  3. TRASTUZUMAB [Suspect]
     Active Substance: TRASTUZUMAB
     Indication: Breast cancer metastatic
     Dosage: 6 MG/KG, EVERY 3 WEEKS; (MOST RECENT DOSE PRIOR TO THE EVENT: 14/DEC/2018)
     Route: 065
     Dates: start: 20180821
  4. TRASTUZUMAB [Suspect]
     Active Substance: TRASTUZUMAB
     Dosage: 8 MG/KG, EVERY 3 WEEKS
     Route: 065
     Dates: start: 20180731, end: 20180731
  5. TRASTUZUMAB [Suspect]
     Active Substance: TRASTUZUMAB
     Dosage: 312 MG, EVERY 3 WEEKS; MOST RECENT DOSE PRIOR TO THE EVENT: 01/APR/2019
     Route: 065
     Dates: start: 20181205
  6. PERJETA [Suspect]
     Active Substance: PERTUZUMAB
     Indication: Breast cancer metastatic
     Route: 065
     Dates: start: 20180731, end: 20180731
  7. PERJETA [Suspect]
     Active Substance: PERTUZUMAB
     Dosage: 420 MG, EVERY 3 WEEKS (MOST RECENT DOSE PRIOR TO THE EVENT: 06/MAR/2019)
     Route: 065
     Dates: start: 20180821
  8. FEMARA [Suspect]
     Active Substance: LETROZOLE
     Indication: Breast cancer metastatic
     Dosage: 2.5 MG, QD (MOST RECENT DOSE ON APR/2019)
     Route: 065
     Dates: start: 20181205, end: 201904
  9. PACLITAXEL [Suspect]
     Active Substance: PACLITAXEL
     Indication: Breast cancer metastatic
     Dosage: 123.18 MG, EVERY 1 WEEK (MOST RECENT DOSE ON 25/SEP/2018)
     Route: 065
     Dates: start: 20180724
  10. AROMASIN [Suspect]
     Active Substance: EXEMESTANE
     Indication: Breast cancer metastatic
     Dosage: EVERY 1 DAY, IN MAY/2019, MOST RECENT DOSE
     Route: 065
     Dates: start: 201904
  11. ARIMIDEX [Suspect]
     Active Substance: ANASTROZOLE
     Indication: Breast cancer metastatic
     Dosage: 1 MG, QD (MOST RECENT DOSE 05/DEC/2018)
     Route: 065
     Dates: start: 20181009
  12. ONTRUZANT [Suspect]
     Active Substance: TRASTUZUMAB-DTTB
     Indication: Product used for unknown indication
     Route: 065
     Dates: start: 20181205
  13. TRAZODONE HYDROCHLORIDE [Concomitant]
     Active Substance: TRAZODONE HYDROCHLORIDE
     Dosage: UNK
     Dates: start: 20180615
  14. DAFLON [Concomitant]
     Indication: Oedema peripheral
  15. RANITIDINE HYDROCHLORIDE [Concomitant]
     Active Substance: RANITIDINE HYDROCHLORIDE
     Dosage: UNK
     Dates: start: 20181002, end: 20190401
  16. DIMETHINDENE [Concomitant]
     Active Substance: DIMETHINDENE
     Dosage: UNK
     Dates: start: 20181002, end: 20190401
  17. ZYRTEC [Concomitant]
     Active Substance: CETIRIZINE HYDROCHLORIDE
     Indication: Pruritus
     Dosage: UNK
     Dates: start: 20181227
  18. PANTOPRAZOLE SODIUM [Concomitant]
     Active Substance: PANTOPRAZOLE SODIUM
  19. CIPRALEX [Concomitant]
     Active Substance: ESCITALOPRAM OXALATE
     Dosage: UNK
     Dates: start: 20190515
  20. LACTULOSE [Concomitant]
     Active Substance: LACTULOSE
     Indication: Constipation
     Dosage: UNK
     Dates: start: 20181227
  21. PASPERTIN [Concomitant]
     Dosage: UNK
     Dates: start: 20180807
  22. ALPRAZOLAM [Concomitant]
     Active Substance: ALPRAZOLAM
     Dosage: UNK
     Dates: start: 20180615
  23. LOVENOX [Concomitant]
     Active Substance: ENOXAPARIN SODIUM
     Dosage: UNK
     Dates: start: 20180828, end: 20190615
  24. NOVALGIN (AUSTRIA) [Concomitant]
     Dosage: UNK
     Dates: start: 20180807

REACTIONS (5)
  - Somnolence [Not Recovered/Not Resolved]
  - Rash [Recovering/Resolving]
  - Vertigo [Recovering/Resolving]
  - Headache [Not Recovered/Not Resolved]
  - Nausea [Recovering/Resolving]

NARRATIVE: CASE EVENT DATE: 20190415
